FAERS Safety Report 17506327 (Version 1)
Quarter: 2020Q1

REPORT INFORMATION
  Report Type: Spontaneous
  Country: US (occurrence: US)
  Receive Date: 20200306
  Receipt Date: 20200306
  Transmission Date: 20200409
  Serious: Yes (Other)
  Sender: FDA-Public Use
  Company Number: US-TEVA-2020-US-1193564

PATIENT
  Age: 18 Year
  Sex: Male

DRUGS (4)
  1. VINCRISTINE [Concomitant]
     Active Substance: VINCRISTINE
     Indication: ANAPLASTIC OLIGODENDROGLIOMA
     Route: 065
  2. TEMOZOLOMIDE. [Suspect]
     Active Substance: TEMOZOLOMIDE
     Indication: ANAPLASTIC OLIGODENDROGLIOMA
     Route: 065
  3. LOMUSTINE. [Concomitant]
     Active Substance: LOMUSTINE
     Indication: ANAPLASTIC OLIGODENDROGLIOMA
     Route: 065
  4. PROCARBAZINE [Concomitant]
     Active Substance: PROCARBAZINE
     Indication: ANAPLASTIC OLIGODENDROGLIOMA
     Route: 065

REACTIONS (4)
  - Hypertension [Unknown]
  - Hypermutation [Unknown]
  - Gene mutation [Unknown]
  - Renal cell carcinoma [Unknown]
